FAERS Safety Report 12187142 (Version 1)
Quarter: 2016Q1

REPORT INFORMATION
  Report Type: Spontaneous
  Country: US (occurrence: None)
  Receive Date: 20160316
  Receipt Date: 20160316
  Transmission Date: 20160526
  Serious: Yes (Disabling, Other)
  Sender: FDA-Public Use
  Company Number: None

PATIENT
  Age: 47 Year
  Sex: Female

DRUGS (20)
  1. SEROQUEL [Suspect]
     Active Substance: QUETIAPINE FUMARATE
     Indication: DEPRESSION
     Dosage: 3 X25 MG =  75 MG
     Route: 048
     Dates: start: 20021120, end: 20131023
  2. MICROGESTIN [Concomitant]
     Active Substance: ETHINYL ESTRADIOL\NORETHINDRONE ACETATE
  3. ADVAIR HFA [Concomitant]
     Active Substance: FLUTICASONE PROPIONATE\SALMETEROL XINAFOATE
  4. AIRBORNE [Concomitant]
     Active Substance: HERBALS\MINERALS\VITAMINS
  5. SINGULAIR [Concomitant]
     Active Substance: MONTELUKAST SODIUM
  6. MELATONIN [Concomitant]
     Active Substance: MELATONIN
  7. GAMMA AMINOBUTYRIC ACID [Concomitant]
  8. IRON SUPPLEMENTATION [Concomitant]
  9. PANTOPRAZOLE [Concomitant]
     Active Substance: PANTOPRAZOLE SODIUM
  10. CETIRIZINE [Concomitant]
     Active Substance: CETIRIZINE HYDROCHLORIDE
  11. NASONEX [Concomitant]
     Active Substance: MOMETASONE FUROATE
  12. ASTEPRO [Concomitant]
     Active Substance: AZELASTINE HYDROCHLORIDE
  13. LORAZEPAM. [Concomitant]
     Active Substance: LORAZEPAM
  14. VITAMIN C [Concomitant]
     Active Substance: ASCORBIC ACID
  15. SEROQUEL [Suspect]
     Active Substance: QUETIAPINE FUMARATE
     Indication: SLEEP DISORDER
     Dosage: 3 X25 MG =  75 MG
     Route: 048
     Dates: start: 20021120, end: 20131023
  16. LORATADINE. [Concomitant]
     Active Substance: LORATADINE
  17. OMEGA-3 FATTY ACIDS [Concomitant]
     Active Substance: OMEGA-3 FATTY ACIDS
  18. SEROQUEL [Suspect]
     Active Substance: QUETIAPINE FUMARATE
     Indication: AFFECTIVE DISORDER
     Dosage: 3 X25 MG =  75 MG
     Route: 048
     Dates: start: 20021120, end: 20131023
  19. CALCIUM MAGNESIUM CITRATE [Concomitant]
  20. ZINC [Concomitant]
     Active Substance: ZINC\ZINC CHLORIDE

REACTIONS (12)
  - Impaired work ability [None]
  - Abnormal behaviour [None]
  - Restless legs syndrome [None]
  - Off label use [None]
  - Withdrawal syndrome [None]
  - Sleep apnoea syndrome [None]
  - Brain injury [None]
  - Memory impairment [None]
  - Cognitive disorder [None]
  - Weight increased [None]
  - Middle insomnia [None]
  - Mental impairment [None]

NARRATIVE: CASE EVENT DATE: 20160315
